FAERS Safety Report 9293543 (Version 4)
Quarter: 2013Q3

REPORT INFORMATION
  Report Type: Spontaneous
  Country: GB (occurrence: GB)
  Receive Date: 20130516
  Receipt Date: 20130703
  Transmission Date: 20140515
  Serious: Yes (Other)
  Sender: FDA-Public Use
  Company Number: GB-GLAXOSMITHKLINE-B0890693A

PATIENT
  Age: 82 Year
  Sex: Female

DRUGS (2)
  1. ZINACEF [Suspect]
     Indication: CATARACT OPERATION
     Route: 047
     Dates: start: 20130424
  2. BALANCED SALT SOLUTION [Concomitant]

REACTIONS (4)
  - Corneal opacity [Recovered/Resolved]
  - Wrong technique in drug usage process [Unknown]
  - Incorrect route of drug administration [Unknown]
  - Product quality issue [Unknown]
